FAERS Safety Report 14677996 (Version 3)
Quarter: 2019Q2

REPORT INFORMATION
  Report Type: Spontaneous
  Country: US (occurrence: US)
  Receive Date: 20180326
  Receipt Date: 20190509
  Transmission Date: 20190711
  Serious: Yes (Other)
  Sender: FDA-Public Use
  Company Number: US-SHIRE-US201808782

PATIENT

DRUGS (1)
  1. XIIDRA [Suspect]
     Active Substance: LIFITEGRAST
     Indication: DRY EYE
     Dosage: 1 GTT, 2X/DAY:BID
     Route: 047
     Dates: start: 20180304

REACTIONS (6)
  - Drug ineffective [Unknown]
  - Dry eye [Unknown]
  - Instillation site pain [Recovered/Resolved]
  - Punctate keratitis [Recovered/Resolved]
  - Eye disorder [Recovering/Resolving]
  - Vision blurred [Recovered/Resolved]
